FAERS Safety Report 8099105-6 (Version None)
Quarter: 2012Q1

REPORT INFORMATION
  Report Type: 
  Country: None (occurrence: None)
  Receive Date: 20120129
  Receipt Date: 20111027
  Transmission Date: 20120608
  Serious: No
  Sender: FDA-Public Use
  Company Number: US-ABBOTT-11P-163-0869110-00

PATIENT
  Age: 65 Year
  Sex: Female

DRUGS (3)
  1. COUGH SYRUP WITH CODEINE [Concomitant]
     Indication: COUGH
     Dosage: AT BEDTIME
  2. HUMIRA [Suspect]
     Indication: PSORIASIS
     Dates: start: 20080601, end: 20111001
  3. AMOXICILLIN [Concomitant]
     Indication: PRODUCT USED FOR UNKNOWN INDICATION
     Route: 048

REACTIONS (4)
  - COUGH [None]
  - RHINORRHOEA [None]
  - INJECTION SITE PAIN [None]
  - OROPHARYNGEAL PAIN [None]
